FAERS Safety Report 10106665 (Version 2)
Quarter: 2014Q4

REPORT INFORMATION
  Report Type: Other
  Country: US (occurrence: US)
  Receive Date: 20140424
  Receipt Date: 20141014
  Transmission Date: 20150528
  Serious: Yes (Hospitalization, Other)
  Sender: FDA-Public Use
  Company Number: US-GSKPPD-2014GSK005108

PATIENT
  Age: 67 Year
  Sex: Male

DRUGS (8)
  1. COREG [Concomitant]
     Active Substance: CARVEDILOL
  2. HYDRALAZINE [Concomitant]
     Active Substance: HYDRALAZINE HYDROCHLORIDE
  3. FUROSEMIDE. [Concomitant]
     Active Substance: FUROSEMIDE
  4. CORDARONE [Concomitant]
     Active Substance: AMIODARONE HYDROCHLORIDE
  5. AVANDIA [Suspect]
     Active Substance: ROSIGLITAZONE MALEATE
     Indication: DIABETES MELLITUS
     Dosage: DATE OF AVANDIA USE COULD NOT BE CONFIRMED IN RECORDS REVIEWED.
     Route: 048
  6. K-DUR [Concomitant]
     Active Substance: POTASSIUM CHLORIDE
  7. LOVENOX [Concomitant]
     Active Substance: ENOXAPARIN SODIUM
     Route: 058
  8. ASPIRIN. [Concomitant]
     Active Substance: ASPIRIN

REACTIONS (2)
  - Myocardial infarction [Recovered/Resolved]
  - Cardiac failure congestive [Unknown]

NARRATIVE: CASE EVENT DATE: 20101008
